FAERS Safety Report 10618725 (Version 2)
Quarter: 2015Q1

REPORT INFORMATION
  Report Type: Spontaneous
  Country: US (occurrence: US)
  Receive Date: 20141202
  Receipt Date: 20150128
  Transmission Date: 20150720
  Serious: No
  Sender: FDA-Public Use
  Company Number: US-PFIZER INC-2014327874

PATIENT
  Age: 54 Year
  Sex: Male

DRUGS (1)
  1. GENOTROPIN [Suspect]
     Active Substance: SOMATROPIN
     Indication: HYPOPITUITARISM
     Dosage: 0.4 MG, DAILY
     Route: 058
     Dates: start: 20141024, end: 20141101

REACTIONS (3)
  - Chest pain [Unknown]
  - Dizziness [Unknown]
  - Alopecia [Unknown]

NARRATIVE: CASE EVENT DATE: 201410
